APPROVED DRUG PRODUCT: SUPRENZA
Active Ingredient: PHENTERMINE HYDROCHLORIDE
Strength: 37.5MG **Federal Register determination that product was not discontinued or withdrawn for safety or effectiveness reasons**
Dosage Form/Route: TABLET, ORALLY DISINTEGRATING;ORAL
Application: N202088 | Product #003
Applicant: CITIUS PHARMACEUTICALS LLC
Approved: Mar 27, 2012 | RLD: No | RS: No | Type: DISCN

PATENTS:
Patent 8440170 | Expires: Mar 14, 2029